FAERS Safety Report 14524287 (Version 1)
Quarter: 2018Q1

REPORT INFORMATION
  Report Type: Spontaneous
  Country: US (occurrence: US)
  Receive Date: 20180213
  Receipt Date: 20180213
  Transmission Date: 20180509
  Serious: No
  Sender: FDA-Public Use
  Company Number: US-PFIZER INC-2018059212

PATIENT
  Age: 34 Year
  Sex: Female

DRUGS (3)
  1. GENOTROPIN MQ [Suspect]
     Active Substance: SOMATROPIN
     Indication: BONE DISORDER
  2. IMIPRAMINE [Concomitant]
     Active Substance: IMIPRAMINE
  3. GENOTROPIN MQ [Suspect]
     Active Substance: SOMATROPIN
     Indication: GROWTH FAILURE
     Dosage: 0.4MG ONE INJECTION 6 DAYS OUT OF THE WEEK (NO DOSE ON SUNDAYS)

REACTIONS (1)
  - Blood cholesterol increased [Unknown]
